FAERS Safety Report 9742574 (Version 2)
Quarter: 2015Q3

REPORT INFORMATION
  Report Type: Spontaneous
  Country: US (occurrence: US)
  Receive Date: 20131210
  Receipt Date: 20150804
  Transmission Date: 20151125
  Serious: No
  Sender: FDA-Public Use
  Company Number: US-GILEAD-2009-0024540

PATIENT
  Age: 75 Year
  Sex: Female
  Weight: 70.31 kg

DRUGS (12)
  1. LIPITOR [Concomitant]
     Active Substance: ATORVASTATIN CALCIUM
  2. POTASSIUM CHLORIDE. [Concomitant]
     Active Substance: POTASSIUM CHLORIDE
  3. PROCRIT [Concomitant]
     Active Substance: ERYTHROPOIETIN
  4. CENTRUM [Concomitant]
     Active Substance: VITAMINS
  5. OXYGEN. [Concomitant]
     Active Substance: OXYGEN
  6. LETAIRIS [Suspect]
     Active Substance: AMBRISENTAN
     Indication: PULMONARY ARTERIAL HYPERTENSION
     Route: 048
     Dates: start: 20090806
  7. ALPRAZOLAM. [Concomitant]
     Active Substance: ALPRAZOLAM
  8. LASIX [Concomitant]
     Active Substance: FUROSEMIDE
  9. PROCARDIA XL [Concomitant]
     Active Substance: NIFEDIPINE
  10. LISINOPRIL. [Concomitant]
     Active Substance: LISINOPRIL
  11. COREG CR [Concomitant]
     Active Substance: CARVEDILOL PHOSPHATE
  12. PLAVIX [Concomitant]
     Active Substance: CLOPIDOGREL BISULFATE

REACTIONS (1)
  - Diarrhoea [Recovered/Resolved]
